FAERS Safety Report 9513498 (Version 1)
Quarter: 2013Q3

REPORT INFORMATION
  Report Type: Spontaneous
  Country: US (occurrence: US)
  Receive Date: 20130910
  Receipt Date: 20130910
  Transmission Date: 20140515
  Serious: No
  Sender: FDA-Public Use
  Company Number: US-TARO-2013P1006613

PATIENT
  Age: 67 Year
  Sex: Female
  Weight: 102.51 kg

DRUGS (16)
  1. WARFARIN SODIUM TABLETS USP 2MG [Suspect]
     Route: 048
     Dates: start: 20130524
  2. BENICAR [Concomitant]
  3. LOVASTATIN [Concomitant]
  4. FOLIC ACID [Concomitant]
  5. METHOTREXATE [Concomitant]
  6. METFORMIN [Concomitant]
     Dates: end: 20130521
  7. PREDNISONE [Concomitant]
  8. ETODOLAC [Concomitant]
     Dates: end: 20130521
  9. CALCIUM, MAGNESIUM, ZINC [Concomitant]
  10. CYMBALTA [Concomitant]
  11. CLONAZEPAM [Concomitant]
  12. ASPIRIN LOW DOSE [Concomitant]
  13. VITAMIN D [Concomitant]
  14. ZIAC [Concomitant]
  15. GENERIC PRILOSEC [Concomitant]
  16. INSULIN [Concomitant]

REACTIONS (1)
  - Dysgeusia [Recovering/Resolving]
